FAERS Safety Report 8065849-5 (Version None)
Quarter: 2012Q1

REPORT INFORMATION
  Report Type: 
  Country: None (occurrence: None)
  Receive Date: 20120124
  Receipt Date: 20120117
  Transmission Date: 20120608
  Serious: Yes (Other)
  Sender: FDA-Public Use
  Company Number: GR-BRISTOL-MYERS SQUIBB COMPANY-16352254

PATIENT
  Age: 42 Year
  Sex: Male

DRUGS (1)
  1. ABILIFY [Suspect]
     Indication: SCHIZOPHRENIA
     Dosage: MAR2007-DEC2009 :30MG/DAY JAN2009-JAN2012 :15MG/DAY
     Route: 048
     Dates: start: 20070301

REACTIONS (1)
  - GLAUCOMA [None]
